FAERS Safety Report 8156329-7 (Version None)
Quarter: 2012Q1

REPORT INFORMATION
  Report Type: 
  Country: None (occurrence: None)
  Receive Date: 20120222
  Receipt Date: 20110829
  Transmission Date: 20120608
  Serious: Yes (Other)
  Sender: FDA-Public Use
  Company Number: US-BRISTOL-MYERS SQUIBB COMPANY-15974603

PATIENT
  Age: 38 Year
  Sex: Female

DRUGS (1)
  1. KENALOG [Suspect]
     Dosage: SECOND:08AUG2007
     Route: 030
     Dates: start: 20070625

REACTIONS (2)
  - INJECTION SITE PAIN [None]
  - INJECTION SITE ATROPHY [None]
